FAERS Safety Report 23717630 (Version 1)
Quarter: 2024Q2

REPORT INFORMATION
  Report Type: Spontaneous
  Country: SE (occurrence: SE)
  Receive Date: 20240408
  Receipt Date: 20240408
  Transmission Date: 20240716
  Serious: Yes (Hospitalization)
  Sender: FDA-Public Use
  Company Number: SE-JNJFOC-20240410747

PATIENT
  Sex: Male

DRUGS (1)
  1. EVITHROM [Suspect]
     Active Substance: THROMBIN HUMAN
     Indication: Haemostasis
     Route: 065

REACTIONS (3)
  - Cerebrovascular accident [Unknown]
  - Cerebellar embolism [Unknown]
  - Device dislocation [Unknown]

NARRATIVE: CASE EVENT DATE: 20200101
